FAERS Safety Report 5301119-3 (Version None)
Quarter: 2007Q2

REPORT INFORMATION
  Report Type: 
  Country: None (occurrence: None)
  Receive Date: 20070418
  Receipt Date: 20070409
  Transmission Date: 20071010
  Serious: Yes (Death, Hospitalization)
  Sender: FDA-Public Use
  Company Number: HQWYE525030JUN06

PATIENT
  Sex: Female
  Weight: 70 kg

DRUGS (13)
  1. ENBREL [Suspect]
     Indication: RHEUMATOID ARTHRITIS
     Route: 058
     Dates: start: 20060612, end: 20060626
  2. PREDONINE [Suspect]
     Dosage: UNSPECIFIED
     Route: 048
     Dates: end: 20060627
  3. RHEUMATREX [Suspect]
     Dosage: 2 MG UNSPECIFIED FREQUENCY
     Route: 048
     Dates: start: 20060318, end: 20060627
  4. VOLTAREN [Concomitant]
     Dosage: UNSPECIFIED
     Route: 054
     Dates: start: 20060525, end: 20060627
  5. LOXONIN [Concomitant]
     Dosage: UNSPECIFIED
     Route: 048
     Dates: end: 20060627
  6. ISCOTIN [Concomitant]
     Indication: ANTIBIOTIC PROPHYLAXIS
     Route: 048
     Dates: start: 20060615, end: 20060627
  7. AMPHOTERICIN B [Concomitant]
     Route: 048
     Dates: start: 20060612
  8. BLOPRESS [Concomitant]
     Indication: HYPERTENSION
     Route: 048
     Dates: start: 20060131, end: 20060627
  9. FOLIAMIN [Concomitant]
     Route: 048
     Dates: start: 20060318, end: 20060627
  10. ZOLPIDEM TARTRATE [Concomitant]
     Indication: INSOMNIA
     Route: 048
     Dates: end: 20060627
  11. LEPETAN [Concomitant]
     Indication: PAIN
     Route: 054
  12. PENTAGIN [Concomitant]
     Indication: PAIN
     Dosage: UNSPECIFIED
     Route: 048
  13. OMEPRAL [Concomitant]
     Indication: REFLUX OESOPHAGITIS
     Route: 048
     Dates: start: 20060131, end: 20060627

REACTIONS (3)
  - BACTERIAL SEPSIS [None]
  - BONE MARROW FAILURE [None]
  - SEPTIC SHOCK [None]
